FAERS Safety Report 16085468 (Version 1)
Quarter: 2019Q1

REPORT INFORMATION
  Report Type: Spontaneous
  Country: IL (occurrence: IL)
  Receive Date: 20190318
  Receipt Date: 20190318
  Transmission Date: 20190418
  Serious: Yes (Hospitalization, Other)
  Sender: FDA-Public Use
  Company Number: IL-NOVOPROD-651701

PATIENT
  Age: 70 Year
  Sex: Female

DRUGS (1)
  1. XULTOPHY 100/3.6 [Suspect]
     Active Substance: INSULIN DEGLUDEC\LIRAGLUTIDE
     Indication: DIABETES MELLITUS
     Dosage: 50 DOSE STEPS (IU)
     Route: 065

REACTIONS (3)
  - Metastases to liver [Unknown]
  - Metastases to stomach [Unknown]
  - Metastases to lung [Unknown]
